FAERS Safety Report 26174138 (Version 2)
Quarter: 2025Q4

REPORT INFORMATION
  Report Type: Spontaneous
  Country: BR (occurrence: BR)
  Receive Date: 20251218
  Receipt Date: 20251229
  Transmission Date: 20260118
  Serious: Yes (Hospitalization, Other)
  Sender: CELLTRION
  Company Number: BR-CELLTRION INC.-2025BR012386

PATIENT

DRUGS (16)
  1. TRUXIMA [Suspect]
     Active Substance: RITUXIMAB-ABBS
     Indication: Systemic scleroderma
     Dosage: 2 AMPOULES (1000 MG) INITIALLY AND AFTER 15 DAYS ANOTHER 2 AMPOULES (1000 MG), CYCLE REPEATED EVERY
     Route: 042
     Dates: start: 20250410
  2. TRUXIMA [Suspect]
     Active Substance: RITUXIMAB-ABBS
     Indication: Chronic obstructive pulmonary disease
     Dosage: 2 AMPOULES OF  500MG EVERY 15 DAYS AND AFTER EVERY 6 MONTHS
     Route: 042
     Dates: start: 20250512
  3. TRUXIMA [Suspect]
     Active Substance: RITUXIMAB-ABBS
     Dosage: 2 AMPOULES OF  500MG EVERY 15 DAYS AND AFTER EVERY 6 MONTHS
     Route: 042
     Dates: start: 202507
  4. MYCOPHENOLIC ACID [Concomitant]
     Active Substance: MYCOPHENOLIC ACID
     Indication: Systemic scleroderma
     Dosage: 4 TABLETS PER DAY
     Route: 048
     Dates: start: 20240801
  5. PREDNISONE [Concomitant]
     Active Substance: PREDNISONE
     Indication: Chronic obstructive pulmonary disease
     Dosage: 5 TABLETS PER DAY
     Route: 048
     Dates: start: 20240801
  6. PREDNISONE [Concomitant]
     Active Substance: PREDNISONE
     Dosage: 2 PILLS A DAY
     Route: 048
  7. CODEINE [Concomitant]
     Active Substance: CODEINE
     Indication: Product used for unknown indication
     Dosage: 1 TABLET EVERY 6 HOURS
     Route: 048
     Dates: start: 20251107
  8. DEXILANT [Concomitant]
     Active Substance: DEXLANSOPRAZOLE
     Indication: Product used for unknown indication
     Dosage: 1 TABLET ON AN EMPTY STOMACH
     Route: 048
  9. ROSUVASTATIN CALCIUM [Concomitant]
     Active Substance: ROSUVASTATIN CALCIUM
     Indication: Hypercholesterolaemia
     Dosage: 1 TABLET AT NIGHT
     Route: 048
  10. AZITHROMYCIN [Concomitant]
     Active Substance: AZITHROMYCIN
     Indication: Pneumonia
     Dosage: UNK
     Route: 048
  11. AZITHROMYCIN [Concomitant]
     Active Substance: AZITHROMYCIN
     Dosage: 1 PILL 3 TIMES A WEEK
     Route: 065
  12. METHYLPREDNISOLONE [Concomitant]
     Active Substance: METHYLPREDNISOLONE
     Indication: Premedication
     Dosage: 100 MG
  13. DIPHENHYDRAMINE [Concomitant]
     Active Substance: DIPHENHYDRAMINE
     Indication: Premedication
     Dosage: 50 MG
  14. PANTOPRAZOLE [Concomitant]
     Active Substance: PANTOPRAZOLE
     Indication: Systemic scleroderma
     Dosage: 1 PILL A DAY
     Route: 065
     Dates: start: 2021
  15. SIMETHICONE (DIMETHICONE) [Concomitant]
     Active Substance: DIMETHICONE
     Indication: Abdominal distension
     Dosage: 1 PILL A DAY
     Route: 065
  16. SIMETHICONE (DIMETHICONE) [Concomitant]
     Active Substance: DIMETHICONE
     Indication: Flatulence

REACTIONS (17)
  - Productive cough [Recovered/Resolved]
  - Pneumonia [Not Recovered/Not Resolved]
  - Bacterial infection [Recovered/Resolved]
  - Oxygen saturation decreased [Unknown]
  - Heart rate increased [Unknown]
  - Condition aggravated [Unknown]
  - Secretion discharge [Unknown]
  - Disorientation [Unknown]
  - Loss of personal independence in daily activities [Unknown]
  - Vertigo [Unknown]
  - Cough [Recovering/Resolving]
  - Fatigue [Unknown]
  - Asthenia [Unknown]
  - Weight decreased [Unknown]
  - Intentional dose omission [Unknown]
  - Off label use [Unknown]
  - Product prescribing issue [Unknown]

NARRATIVE: CASE EVENT DATE: 20250301
